FAERS Safety Report 4384723-9 (Version None)
Quarter: 2004Q2

REPORT INFORMATION
  Report Type: 
  Country: None (occurrence: None)
  Receive Date: 20040621
  Receipt Date: 20040607
  Transmission Date: 20050107
  Serious: Yes (Hospitalization)
  Sender: FDA-Public Use
  Company Number: 2004CG01098

PATIENT
  Age: 85 Year
  Sex: Male

DRUGS (3)
  1. NEXIUM [Suspect]
     Indication: GASTRIC ULCER
     Dosage: 20 MG QD PO
     Route: 048
  2. GARDENAL ^AVENTIS^ [Concomitant]
  3. PREVISCAN [Concomitant]

REACTIONS (2)
  - HAEMOLYTIC ANAEMIA [None]
  - THROMBOCYTOPENIA [None]
